FAERS Safety Report 4681111-2 (Version None)
Quarter: 2005Q2

REPORT INFORMATION
  Report Type: 
  Country: None (occurrence: None)
  Receive Date: 20050601
  Receipt Date: 20050519
  Transmission Date: 20051028
  Serious: Yes (Hospitalization, Other)
  Sender: FDA-Public Use
  Company Number: 2005079331

PATIENT
  Age: 42 Year
  Sex: Female

DRUGS (4)
  1. DAYPRO [Suspect]
     Indication: OSTEITIS
     Dates: start: 19920101
  2. MOTRIN [Suspect]
     Indication: OSTEITIS
     Dosage: 800 MG TID, ORAL
     Route: 048
     Dates: start: 19890101, end: 19911001
  3. INDOMETHACIN [Suspect]
     Indication: OSTEITIS
     Dates: start: 19890101, end: 19911001
  4. ANALGESICS (ANALGESICS) [Concomitant]

REACTIONS (6)
  - DEPRESSION [None]
  - FOOD INTOLERANCE [None]
  - HYPERTENSION [None]
  - PAIN [None]
  - SMALL INTESTINAL OBSTRUCTION [None]
  - UNEVALUABLE EVENT [None]
